FAERS Safety Report 18361849 (Version 1)
Quarter: 2020Q4

REPORT INFORMATION
  Report Type: Spontaneous
  Country: US (occurrence: US)
  Receive Date: 20201008
  Receipt Date: 20201008
  Transmission Date: 20210114
  Serious: Yes (Other)
  Sender: FDA-Public Use
  Company Number: US-PROCTER_AND_GAMBLE-GS20113716

PATIENT

DRUGS (1)
  1. VICKS SINEX 12 HOUR DECONGESTANT [Suspect]
     Active Substance: OXYMETAZOLINE HYDROCHLORIDE
     Dosage: UNK
     Route: 045

REACTIONS (4)
  - Sinus disorder [Recovered/Resolved]
  - Dependence [Recovered/Resolved]
  - Nasal congestion [Recovered/Resolved]
  - Epistaxis [Recovered/Resolved]

NARRATIVE: CASE EVENT DATE: 2014
